FAERS Safety Report 17366007 (Version 2)
Quarter: 2020Q1

REPORT INFORMATION
  Report Type: Spontaneous
  Country: US (occurrence: US)
  Receive Date: 20200204
  Receipt Date: 20200206
  Transmission Date: 20200409
  Serious: Yes (Other)
  Sender: FDA-Public Use
  Company Number: US-009507513-2002USA000512

PATIENT
  Age: 36 Year
  Sex: Female
  Weight: 69.3 kg

DRUGS (4)
  1. TEMODAR [Suspect]
     Active Substance: TEMOZOLOMIDE
     Dosage: UNK
     Dates: start: 20170509, end: 201706
  2. TEMODAR [Suspect]
     Active Substance: TEMOZOLOMIDE
     Indication: OLIGODENDROGLIOMA BENIGN
     Dosage: 12 CYCLES OF MONTHLY
     Dates: start: 20090202, end: 201001
  3. TEMODAR [Suspect]
     Active Substance: TEMOZOLOMIDE
     Dosage: MONTHLY
     Dates: start: 201708, end: 201711
  4. TEMODAR [Suspect]
     Active Substance: TEMOZOLOMIDE
     Indication: MALIGNANT OLIGODENDROGLIOMA
     Dosage: 12 CYCLES OF MONTHLY
     Dates: start: 201506, end: 201606

REACTIONS (3)
  - Product use in unapproved indication [Unknown]
  - Anaplastic oligodendroglioma [Unknown]
  - Oligodendroglioma [Unknown]

NARRATIVE: CASE EVENT DATE: 20090202
